FAERS Safety Report 12816629 (Version 1)
Quarter: 2016Q4

REPORT INFORMATION
  Report Type: Spontaneous
  Country: US (occurrence: US)
  Receive Date: 20161005
  Receipt Date: 20161005
  Transmission Date: 20170207
  Serious: No
  Sender: FDA-Public Use
  Company Number: US-AMGEN-USASP2015102291

PATIENT
  Age: 61 Year
  Sex: Female
  Weight: 66.67 kg

DRUGS (1)
  1. PROLIA [Suspect]
     Active Substance: DENOSUMAB
     Indication: OSTEOPOROSIS
     Dosage: UNK UNK, Q6MO
     Route: 065
     Dates: start: 20120525, end: 20140211

REACTIONS (3)
  - Drug ineffective [Unknown]
  - Bone density decreased [Unknown]
  - Osteoporosis [Unknown]
